FAERS Safety Report 9648134 (Version 1)
Quarter: 2013Q4

REPORT INFORMATION
  Report Type: Spontaneous
  Country: US (occurrence: None)
  Receive Date: 20131024
  Receipt Date: 20131024
  Transmission Date: 20140711
  Serious: Yes (Life-Threatening, Hospitalization, Disabling)
  Sender: FDA-Public Use
  Company Number: None

PATIENT
  Age: 67 Year
  Sex: Male
  Weight: 97.07 kg

DRUGS (1)
  1. LEUPROLIDE [Suspect]
     Indication: PROSTATE CANCER
     Dates: start: 20130731

REACTIONS (29)
  - Pain [None]
  - Apathy [None]
  - Lung disorder [None]
  - Fatigue [None]
  - Pain in extremity [None]
  - Pain [None]
  - Asthenia [None]
  - Choking sensation [None]
  - Swelling face [None]
  - Local swelling [None]
  - Pharyngeal oedema [None]
  - Abdominal distension [None]
  - Increased appetite [None]
  - Oedema [None]
  - Anxiety [None]
  - Eye swelling [None]
  - Malaise [None]
  - Hot flush [None]
  - Hyperhidrosis [None]
  - Dizziness [None]
  - Vertigo [None]
  - Confusional state [None]
  - Thinking abnormal [None]
  - Blood cholesterol increased [None]
  - Dysphonia [None]
  - Bone pain [None]
  - Dry mouth [None]
  - Deep vein thrombosis [None]
  - Pulmonary embolism [None]
